FAERS Safety Report 19193100 (Version 1)
Quarter: 2021Q2

REPORT INFORMATION
  Report Type: Spontaneous
  Country: IT (occurrence: IT)
  Receive Date: 20210429
  Receipt Date: 20210429
  Transmission Date: 20210717
  Serious: Yes (Death, Life-Threatening, Hospitalization, Other)
  Sender: FDA-Public Use
  Company Number: IT-HIKMA PHARMACEUTICALS USA INC.-IT-H14001-21-02067

PATIENT
  Age: 53 Year
  Sex: Female

DRUGS (3)
  1. CYTARABINE. [Suspect]
     Active Substance: CYTARABINE
     Indication: ACUTE MYELOID LEUKAEMIA
     Dosage: 200 MG/M2 GIVEN AS A DAILY INTRAVENOUS CONTINUOUS INFUSION
     Route: 042
     Dates: start: 20210322, end: 20210328
  2. GEMTUZUMAB OZOGAMICIN [Suspect]
     Active Substance: GEMTUZUMAB OZOGAMICIN
     Indication: ACUTE MYELOID LEUKAEMIA
     Dosage: 3 MG/M2 OVER TWO HOURS ON THE FIRST, FOURTH AND SEVENTH DAY
     Route: 042
     Dates: start: 20210322, end: 20210328
  3. DAUNORUBICIN HYDROCHLORIDE. [Suspect]
     Active Substance: DAUNORUBICIN HYDROCHLORIDE
     Indication: ACUTE MYELOID LEUKAEMIA
     Dosage: 60 MG/M2 OVER ONE HOUR ON THE FIRST, SECOND AND THIRD DAY
     Route: 042
     Dates: start: 20210322, end: 20210324

REACTIONS (3)
  - Septic shock [Fatal]
  - Proctitis [Unknown]
  - Pseudomonas infection [Unknown]

NARRATIVE: CASE EVENT DATE: 20210418
